FAERS Safety Report 6707020-2 (Version None)
Quarter: 2010Q2

REPORT INFORMATION
  Report Type: 
  Country: None (occurrence: None)
  Receive Date: 20100430
  Receipt Date: 20100430
  Transmission Date: 20101027
  Serious: Yes (Life-Threatening, Hospitalization)
  Sender: FDA-Public Use
  Company Number: None

PATIENT

DRUGS (1)
  1. FENTANYL [Suspect]
     Indication: INTERVERTEBRAL DISC PROTRUSION
     Dosage: 75 MCG/H EVERY 72 HOURS
     Dates: start: 20090101, end: 20100411

REACTIONS (3)
  - PRODUCT PACKAGING ISSUE [None]
  - PRODUCT QUALITY ISSUE [None]
  - RESPIRATORY DISORDER [None]
